FAERS Safety Report 10601826 (Version 1)
Quarter: 2014Q4

REPORT INFORMATION
  Report Type: Spontaneous
  Country: US (occurrence: None)
  Receive Date: 20141121
  Receipt Date: 20141121
  Transmission Date: 20150529
  Serious: No
  Sender: FDA-Public Use
  Company Number: None

PATIENT
  Age: 56 Year
  Sex: Female
  Weight: 92.08 kg

DRUGS (2)
  1. LISINOPRIL AND HYDROCHLOROTHIAZIDE [Suspect]
     Active Substance: HYDROCHLOROTHIAZIDE\LISINOPRIL
  2. IBUPROFEN. [Suspect]
     Active Substance: IBUPROFEN
     Indication: HYPERTENSION
     Dosage: 1 PILL
     Route: 048

REACTIONS (2)
  - Product formulation issue [None]
  - Gastrointestinal disorder [None]
